FAERS Safety Report 20211260 (Version 1)
Quarter: 2021Q4

REPORT INFORMATION
  Report Type: Spontaneous
  Country: CA (occurrence: CA)
  Receive Date: 20211221
  Receipt Date: 20211221
  Transmission Date: 20220303
  Serious: Yes (Hospitalization)
  Sender: FDA-Public Use
  Company Number: CA-TEVA-2021-CA-1990959

PATIENT
  Age: 90 Year
  Sex: Female

DRUGS (16)
  1. SILDENAFIL CITRATE [Suspect]
     Active Substance: SILDENAFIL CITRATE
     Indication: Pulmonary arterial hypertension
     Dosage: 60 MILLIGRAM DAILY;
     Route: 048
  2. OPSUMIT [Suspect]
     Active Substance: MACITENTAN
     Indication: Product used for unknown indication
     Route: 065
  3. ADVAIR HFA [Concomitant]
     Active Substance: FLUTICASONE PROPIONATE\SALMETEROL XINAFOATE
  4. AMLODIPINE [Concomitant]
     Active Substance: AMLODIPINE BESYLATE
  5. FERROUS GLUCONATE [Concomitant]
     Active Substance: FERROUS GLUCONATE
  6. FUROSEMIDE [Concomitant]
     Active Substance: FUROSEMIDE
  7. GLICLAZIDE [Concomitant]
     Active Substance: GLICLAZIDE
  8. HYDROCHLOROTHIAZIDE [Concomitant]
     Active Substance: HYDROCHLOROTHIAZIDE
  9. INSULIN NOS [Concomitant]
     Active Substance: INSULIN NOS
     Route: 048
  10. JANUVIA [Concomitant]
     Active Substance: SITAGLIPTIN PHOSPHATE
  11. PANTOPRAZOLE [Concomitant]
     Active Substance: PANTOPRAZOLE
  12. PAROXETINE [Concomitant]
     Active Substance: PAROXETINE
  13. HERBALS\PLANTAGO OVATA LEAF [Concomitant]
     Active Substance: HERBALS\PLANTAGO OVATA LEAF
  14. RAMIPRIL [Concomitant]
     Active Substance: RAMIPRIL
  15. RISEDRONATE SODIUM [Concomitant]
     Active Substance: RISEDRONATE SODIUM
  16. SPIRIVA [Concomitant]
     Active Substance: TIOTROPIUM BROMIDE MONOHYDRATE

REACTIONS (5)
  - Cardiac failure congestive [Not Recovered/Not Resolved]
  - Dyspnoea [Not Recovered/Not Resolved]
  - Muscle tightness [Not Recovered/Not Resolved]
  - Oedema peripheral [Not Recovered/Not Resolved]
  - Poor quality sleep [Not Recovered/Not Resolved]
